FAERS Safety Report 9807610 (Version 1)
Quarter: 2014Q1

REPORT INFORMATION
  Report Type: Spontaneous
  Country: US (occurrence: US)
  Receive Date: 20140110
  Receipt Date: 20140110
  Transmission Date: 20141002
  Serious: No
  Sender: FDA-Public Use
  Company Number: US-SANOFI-AVENTIS-2013SA057294

PATIENT
  Sex: Female
  Weight: 72.57 kg

DRUGS (10)
  1. PLAVIX [Suspect]
     Indication: STENT PLACEMENT
     Route: 048
     Dates: end: 20130525
  2. TOPROL XL [Concomitant]
  3. NORVASC [Concomitant]
  4. HYDROCHLOROTHIAZIDE [Concomitant]
  5. K-DUR [Concomitant]
  6. PAROXETINE [Concomitant]
  7. CHOLESTEROL- AND TRIGLYCERIDE REDUCERS [Concomitant]
  8. ASPIRIN [Concomitant]
  9. ATIVAN [Concomitant]
  10. PREDNISONE [Concomitant]

REACTIONS (6)
  - Musculoskeletal pain [Unknown]
  - Sleep disorder [Unknown]
  - Arthralgia [Unknown]
  - Swelling [Unknown]
  - Erythema [Unknown]
  - Feeling hot [Unknown]
